FAERS Safety Report 15465035 (Version 1)
Quarter: 2018Q4

REPORT INFORMATION
  Report Type: Spontaneous
  Country: US (occurrence: US)
  Receive Date: 20181004
  Receipt Date: 20181004
  Transmission Date: 20190204
  Serious: No
  Sender: FDA-Public Use
  Company Number: US-BIOMARINAP-US-2018-120056

PATIENT
  Age: 30 Year
  Sex: Male
  Weight: 39 kg

DRUGS (1)
  1. NAGLAZYME [Suspect]
     Active Substance: GALSULFASE
     Indication: MUCOPOLYSACCHARIDOSIS VI
     Dosage: 40 MILLIGRAM, QW
     Route: 042
     Dates: start: 20091118

REACTIONS (2)
  - Cough [Not Recovered/Not Resolved]
  - Nasal congestion [Recovering/Resolving]

NARRATIVE: CASE EVENT DATE: 20180920
